FAERS Safety Report 9706880 (Version 1)
Quarter: 2013Q4

REPORT INFORMATION
  Report Type: Spontaneous
  Country: US (occurrence: US)
  Receive Date: 20131125
  Receipt Date: 20131125
  Transmission Date: 20140711
  Serious: Yes (Other)
  Sender: FDA-Public Use
  Company Number: US-BAYER-2013-142336

PATIENT
  Age: 35 Year
  Sex: Female

DRUGS (3)
  1. YAZ [Suspect]
  2. NEXIUM [Concomitant]
     Dosage: 40 MG, UNK
  3. PHENTERMINE [Concomitant]
     Dosage: 37.5 MG, UNK

REACTIONS (1)
  - Cholecystitis chronic [None]
